FAERS Safety Report 8388522-2 (Version None)
Quarter: 2012Q2

REPORT INFORMATION
  Report Type: 
  Country: None (occurrence: None)
  Receive Date: 20120525
  Receipt Date: 20120510
  Transmission Date: 20120825
  Serious: Yes (Other)
  Sender: FDA-Public Use
  Company Number: CHPA2012US010925

PATIENT
  Sex: Female

DRUGS (5)
  1. EXCEDRIN EXTRA STRENGTH TABLETS [Suspect]
     Indication: HEADACHE
     Dosage: 1-1.5 DF, UNK
     Route: 048
     Dates: start: 19600101
  2. ASPIRIN [Concomitant]
     Dosage: UNK
  3. CHOLESTYRAMINE [Concomitant]
     Dosage: UNK
  4. MULTI-VITAMINS [Concomitant]
     Dosage: UNK
  5. B12 ANKERMANN [Concomitant]
     Dosage: UNK

REACTIONS (13)
  - INTRAOCULAR PRESSURE DECREASED [None]
  - HEADACHE [None]
  - DRUG INEFFECTIVE [None]
  - BLINDNESS TRANSIENT [None]
  - WRONG TECHNIQUE IN DRUG USAGE PROCESS [None]
  - GLAUCOMA [None]
  - UNDERDOSE [None]
  - HYPERTENSION [None]
  - FALL [None]
  - GASTRIC DISORDER [None]
  - LOWER LIMB FRACTURE [None]
  - VISUAL ACUITY REDUCED [None]
  - OPTIC ISCHAEMIC NEUROPATHY [None]
